FAERS Safety Report 12711784 (Version 1)
Quarter: 2016Q3

REPORT INFORMATION
  Report Type: Spontaneous
  Country: CH (occurrence: CH)
  Receive Date: 20160902
  Receipt Date: 20160902
  Transmission Date: 20161109
  Serious: Yes (Disabling)
  Sender: FDA-Public Use
  Company Number: CH-SA-2016SA161400

PATIENT
  Age: 70 Year
  Sex: Female
  Weight: 58 kg

DRUGS (28)
  1. XENETIX [Suspect]
     Active Substance: IOBITRIDOL
     Indication: COMPUTERISED TOMOGRAM THORAX
     Dosage: FORM-VIALS
     Route: 040
     Dates: start: 20160415, end: 20160719
  2. EZETROL [Concomitant]
     Active Substance: EZETIMIBE
     Route: 048
  3. FRAGMIN [Concomitant]
     Active Substance: DALTEPARIN SODIUM
     Indication: ADMINISTRATION SITE THROMBOSIS
     Route: 058
  4. FORTECORTIN [Concomitant]
     Active Substance: DEXAMETHASONE
     Route: 048
  5. ALIMTA [Suspect]
     Active Substance: PEMETREXED DISODIUM
     Indication: LUNG ADENOCARCINOMA STAGE IV
     Dosage: FORM--INFUSION AMPOLUES,DRY VIALS/BOTTLES
     Route: 041
     Dates: start: 20160126, end: 20160331
  6. CISPLATIN EBEWE [Suspect]
     Active Substance: CISPLATIN
     Indication: LUNG ADENOCARCINOMA STAGE IV
     Dosage: FORM-INFUSION AMPOULES
     Route: 041
     Dates: start: 20160126, end: 20160331
  7. MONOVO [Concomitant]
     Route: 061
     Dates: start: 201602, end: 201603
  8. PANTOZOL [Suspect]
     Active Substance: PANTOPRAZOLE SODIUM
     Indication: PRODUCT USED FOR UNKNOWN INDICATION
     Route: 048
     Dates: start: 201601
  9. CALCIMAGON-D3 [Concomitant]
     Active Substance: CALCIUM\CHOLECALCIFEROL
     Dosage: 2500 MG / 800 U 1/DAY
     Route: 048
  10. PRIMPERAN [Concomitant]
     Active Substance: METOCLOPRAMIDE HYDROCHLORIDE
  11. SOLU-MEDROL [Concomitant]
     Active Substance: METHYLPREDNISOLONE SODIUM SUCCINATE
     Route: 041
  12. ALIMTA [Suspect]
     Active Substance: PEMETREXED DISODIUM
     Indication: LUNG ADENOCARCINOMA STAGE IV
     Dosage: FORM--INFUSION AMPOLUES,DRY VIALS/BOTTLES
     Route: 041
     Dates: start: 20160126, end: 20160331
  13. ALIMTA [Suspect]
     Active Substance: PEMETREXED DISODIUM
     Indication: LUNG ADENOCARCINOMA STAGE IV
     Route: 041
     Dates: start: 20160421, end: 20160614
  14. ATENOLOL. [Concomitant]
     Active Substance: ATENOLOL
     Route: 048
  15. ANDREAFOL [Concomitant]
     Route: 048
  16. EUTHYROX [Concomitant]
     Active Substance: LEVOTHYROXINE SODIUM
     Dosage: 50 MCG
  17. ULTRAVIST [Suspect]
     Active Substance: IOPROMIDE
     Indication: COMPUTERISED TOMOGRAM THORAX
     Dosage: FORM-VIALS
     Route: 040
     Dates: start: 20160222, end: 20160222
  18. OPTIDERM [Concomitant]
     Route: 061
     Dates: start: 201602, end: 201603
  19. ALIMTA [Suspect]
     Active Substance: PEMETREXED DISODIUM
     Indication: LUNG ADENOCARCINOMA STAGE IV
     Route: 041
     Dates: start: 20160421, end: 20160614
  20. ASPIRIN. [Concomitant]
     Active Substance: ASPIRIN
     Route: 048
  21. XARELTO [Concomitant]
     Active Substance: RIVAROXABAN
     Indication: ADMINISTRATION SITE THROMBOSIS
     Route: 048
  22. NOVALGIN [Concomitant]
     Active Substance: METAMIZOLE SODIUM
  23. APROVEL [Suspect]
     Active Substance: IRBESARTAN
     Indication: HYPERTENSION
     Route: 048
     Dates: start: 2016, end: 2016
  24. VITARUBIN [Concomitant]
     Active Substance: CYANOCOBALAMIN
     Route: 058
  25. EMEND [Concomitant]
     Active Substance: APREPITANT
     Route: 048
  26. COAPROVEL [Suspect]
     Active Substance: HYDROCHLOROTHIAZIDE\IRBESARTAN
     Indication: HYPERTENSION
     Route: 048
     Dates: start: 2016, end: 2016
  27. DAFALGAN [Concomitant]
     Active Substance: ACETAMINOPHEN
     Route: 048
  28. ONDANSETRON [Concomitant]
     Active Substance: ONDANSETRON
     Route: 042

REACTIONS (2)
  - Chronic kidney disease [Not Recovered/Not Resolved]
  - Drug interaction [Not Recovered/Not Resolved]

NARRATIVE: CASE EVENT DATE: 201601
